FAERS Safety Report 7365778-6 (Version None)
Quarter: 2011Q1

REPORT INFORMATION
  Report Type: 
  Country: None (occurrence: None)
  Receive Date: 20110322
  Receipt Date: 20110309
  Transmission Date: 20110831
  Serious: Yes (Hospitalization, Other)
  Sender: FDA-Public Use
  Company Number: JP-CELGENEUS-087-21880-10122978

PATIENT
  Sex: Female
  Weight: 50.2 kg

DRUGS (4)
  1. VERAPAMIL HCL [Concomitant]
     Indication: ARRHYTHMIA
     Dosage: 80 MILLIGRAM
     Route: 048
     Dates: start: 20101124, end: 20101129
  2. LIVALO [Concomitant]
     Indication: HYPERLIPIDAEMIA
     Dosage: 2 MILLIGRAM
     Route: 048
     Dates: start: 20101124, end: 20101129
  3. REVLIMID [Suspect]
     Indication: MYELODYSPLASTIC SYNDROME
     Dosage: 5 MILLIGRAM
     Route: 048
     Dates: start: 20101124, end: 20101129
  4. ASPIRIN [Concomitant]
     Indication: PROPHYLAXIS
     Dosage: 100 MILLIGRAM
     Route: 048
     Dates: start: 20101125, end: 20101201

REACTIONS (5)
  - THROMBOCYTOPENIA [None]
  - CARDIAC FAILURE [None]
  - NEUTROPENIA [None]
  - PERICARDIAL EFFUSION [None]
  - PNEUMONIA [None]
